FAERS Safety Report 21444615 (Version 1)
Quarter: 2022Q4

REPORT INFORMATION
  Report Type: Spontaneous
  Country: AT (occurrence: None)
  Receive Date: 20221012
  Receipt Date: 20221012
  Transmission Date: 20230113
  Serious: Yes (Other)
  Sender: FDA-Public Use
  Company Number: 2022A336600

PATIENT
  Age: 57 Year
  Sex: Female

DRUGS (5)
  1. SEROQUEL [Suspect]
     Active Substance: QUETIAPINE FUMARATE
     Dosage: 400 MG, 1X/DAY ( 0-0-0-1)
     Route: 048
  2. SEROQUEL XR [Suspect]
     Active Substance: QUETIAPINE FUMARATE
     Dosage: 400 MG, 1X/DAY (0-0-1-0)
     Route: 048
  3. EUTHYROX [Suspect]
     Active Substance: LEVOTHYROXINE SODIUM
     Dosage: 100 UG, 1X/DAY (1-0-0-0)100UG/INHAL DAILY
     Route: 065
  4. LYRICA [Suspect]
     Active Substance: PREGABALIN
     Dosage: 100 MG, 2X/DAY (1-0-0-1)
     Route: 065
  5. LORAZEPAM [Suspect]
     Active Substance: LORAZEPAM
     Dosage: 1 MG, UP TO MAX 3 TABLETS A DAY
     Route: 065

REACTIONS (5)
  - Pneumonia [Recovering/Resolving]
  - Atelectasis [Unknown]
  - C-reactive protein increased [Unknown]
  - Hepatomegaly [Unknown]
  - FEV1/FVC ratio decreased [Unknown]
